FAERS Safety Report 19247410 (Version 1)
Quarter: 2021Q2

REPORT INFORMATION
  Report Type: Spontaneous
  Country: US (occurrence: US)
  Receive Date: 20210512
  Receipt Date: 20210512
  Transmission Date: 20210717
  Serious: No
  Sender: FDA-Public Use
  Company Number: None

PATIENT
  Age: 42 Year
  Sex: Female
  Weight: 81.9 kg

DRUGS (5)
  1. ZOLIDEX 3.6 MG SQ [Concomitant]
  2. FASLODEX [Suspect]
     Active Substance: FULVESTRANT
     Dosage: ?          OTHER FREQUENCY:ONCE;?THERAPY ONGOING: Y
     Route: 030
     Dates: start: 20210408, end: 20210408
  3. LIDOCAINE 9 ML [Concomitant]
  4. SODIUM BICARBONATE 1 ML [Concomitant]
  5. DENOSUMAB 120 MG [Concomitant]

REACTIONS (1)
  - Injection site vesicles [None]

NARRATIVE: CASE EVENT DATE: 20210408
